FAERS Safety Report 12852523 (Version 1)
Quarter: 2016Q4

REPORT INFORMATION
  Report Type: Spontaneous
  Country: US (occurrence: US)
  Receive Date: 20161017
  Receipt Date: 20161017
  Transmission Date: 20170207
  Serious: No
  Sender: FDA-Public Use
  Company Number: US-CELGENEUS-163-21880-11122044

PATIENT
  Age: 42 Year
  Sex: Female

DRUGS (1)
  1. REVLIMID [Suspect]
     Active Substance: LENALIDOMIDE
     Indication: PLASMA CELL MYELOMA
     Dosage: 25 MILLIGRAM
     Route: 048
     Dates: start: 201112

REACTIONS (7)
  - Abdominal distension [Unknown]
  - Heart rate increased [Unknown]
  - Pyrexia [Unknown]
  - Skin exfoliation [Unknown]
  - Peripheral swelling [Unknown]
  - Musculoskeletal chest pain [Unknown]
  - Rash [Unknown]

NARRATIVE: CASE EVENT DATE: 201112
